FAERS Safety Report 9448387 (Version 1)
Quarter: 2013Q3

REPORT INFORMATION
  Report Type: Spontaneous
  Country: IT (occurrence: IT)
  Receive Date: 20130808
  Receipt Date: 20130808
  Transmission Date: 20140515
  Serious: Yes (Life-Threatening, Other)
  Sender: FDA-Public Use
  Company Number: IT-MILLENNIUM PHARMACEUTICALS, INC.-2013-05872

PATIENT
  Sex: 0

DRUGS (7)
  1. VELCADE [Suspect]
     Indication: PLASMA CELL MYELOMA
     Dosage: 1.3 MG/M2, CYCLIC
     Route: 065
  2. BENDAMUSTINE [Suspect]
     Indication: PLASMA CELL MYELOMA
     Dosage: 150 MG/M2, CYCLIC
     Route: 065
  3. BENDAMUSTINE [Suspect]
     Dosage: 70 MG/M2, UNK
     Route: 065
  4. DEXAMETHASONE [Suspect]
     Indication: PLASMA CELL MYELOMA
     Dosage: 40 MG, CYCLIC
     Route: 065
  5. TRIMETHOPRIM SULFAMETHOXAZOLE [Concomitant]
  6. ANTIEMETICS AND ANTINAUSEANTS [Concomitant]
  7. ANTIFUNGALS [Concomitant]

REACTIONS (6)
  - Neutropenia [Unknown]
  - Thrombocytopenia [Unknown]
  - Pyrexia [Unknown]
  - Hyperglycaemia [Unknown]
  - Insomnia [Unknown]
  - Oedema peripheral [Unknown]
